FAERS Safety Report 6095714-4 (Version None)
Quarter: 2009Q1

REPORT INFORMATION
  Report Type: 
  Country: None (occurrence: None)
  Receive Date: 20090227
  Receipt Date: 20080611
  Transmission Date: 20090719
  Serious: No
  Sender: FDA-Public Use
  Company Number: A0730204A

PATIENT
  Age: 46 Year
  Sex: Female

DRUGS (2)
  1. LAMICTAL [Suspect]
     Indication: BIPOLAR DISORDER
     Dosage: 50MG PER DAY
     Route: 048
     Dates: start: 20080507, end: 20080526
  2. SEROQUEL [Concomitant]

REACTIONS (10)
  - BACK PAIN [None]
  - COUGH [None]
  - FATIGUE [None]
  - LYMPHADENOPATHY [None]
  - NASOPHARYNGITIS [None]
  - OROPHARYNGEAL PAIN [None]
  - PAIN [None]
  - PYREXIA [None]
  - STOMATITIS [None]
  - TONGUE DISORDER [None]
